FAERS Safety Report 8418112-4 (Version None)
Quarter: 2012Q2

REPORT INFORMATION
  Report Type: 
  Country: None (occurrence: None)
  Receive Date: 20120531
  Receipt Date: 20120516
  Transmission Date: 20120825
  Serious: Yes (Life-Threatening, Other)
  Sender: FDA-Public Use
  Company Number: 2011SGN00291

PATIENT
  Age: 38 Year
  Sex: Female
  Weight: 57.6 kg

DRUGS (7)
  1. ADCETRIS [Suspect]
     Indication: ANAPLASTIC LARGE CELL LYMPHOMA T- AND NULL-CELL TYPES
     Dosage: 1.8 MG/KG,Q21D
     Dates: start: 20110919, end: 20111013
  2. BENADRYL [Concomitant]
  3. LEVOTHROID [Concomitant]
  4. PROCHLORPERAZINE (PROCHLORPERAZINE MALEATE) [Concomitant]
  5. FLUCONAZOLE [Concomitant]
  6. IMODIUM ADVANCED (LOPERAMIDE, SIMETICONE) [Concomitant]
  7. ABILIFY [Concomitant]

REACTIONS (1)
  - PROGRESSIVE MULTIFOCAL LEUKOENCEPHALOPATHY [None]
